FAERS Safety Report 9214030 (Version 1)
Quarter: 2013Q2

REPORT INFORMATION
  Report Type: Spontaneous
  Country: US (occurrence: None)
  Receive Date: 20130404
  Receipt Date: 20130404
  Transmission Date: 20140414
  Serious: Yes (Other)
  Sender: FDA-Public Use
  Company Number: None

PATIENT
  Age: 69 Year
  Sex: Male

DRUGS (1)
  1. ZYTIGA 250 MG JANSSEN BIOTECH [Suspect]
     Route: 048
     Dates: start: 20130227, end: 20130303

REACTIONS (3)
  - Malaise [None]
  - Swelling [None]
  - Dysuria [None]
